FAERS Safety Report 6733904-5 (Version None)
Quarter: 2010Q2

REPORT INFORMATION
  Report Type: 
  Country: None (occurrence: None)
  Receive Date: 20100520
  Receipt Date: 20100517
  Transmission Date: 20101027
  Serious: Yes (Hospitalization, Other)
  Sender: FDA-Public Use
  Company Number: JP-ROCHE-697445

PATIENT
  Age: 64 Year
  Sex: Female

DRUGS (5)
  1. ACTEMRA [Suspect]
     Indication: RHEUMATOID ARTHRITIS
     Route: 041
     Dates: start: 20100201, end: 20100331
  2. CLARITHROMYCIN [Suspect]
     Indication: DRUG USE FOR UNKNOWN INDICATION
     Dosage: FORM: PERORAL AGENT
     Route: 048
  3. RIFAMPICIN [Suspect]
     Indication: DRUG USE FOR UNKNOWN INDICATION
     Route: 048
  4. ETHAMBUTOL HYDROCHLORIDE [Suspect]
     Indication: DRUG USE FOR UNKNOWN INDICATION
     Dosage: DRUG: UNKNOWNDRUG (ETHAMBUTOL HYDROCHLORIDE), FORM: PERORAL AGENT,
     Route: 048
  5. LASIX [Suspect]
     Indication: OEDEMA
     Dosage: FORM: PERORAL AGENT
     Route: 048
     Dates: start: 20100407

REACTIONS (3)
  - ERYTHEMA MULTIFORME [None]
  - OEDEMA [None]
  - RENAL FAILURE CHRONIC [None]
